FAERS Safety Report 15083983 (Version 1)
Quarter: 2018Q2

REPORT INFORMATION
  Report Type: Spontaneous
  Country: US (occurrence: US)
  Receive Date: 20180628
  Receipt Date: 20180628
  Transmission Date: 20180711
  Serious: No
  Sender: FDA-Public Use
  Company Number: US-SA-2018SA163839

PATIENT
  Age: 61 Year
  Sex: Female

DRUGS (8)
  1. QUETIAPINE. [Concomitant]
     Active Substance: QUETIAPINE
  2. LISINOPRIL. [Concomitant]
     Active Substance: LISINOPRIL
  3. LORAZEPAM. [Concomitant]
     Active Substance: LORAZEPAM
  4. METOPROLOL TARTRATE. [Concomitant]
     Active Substance: METOPROLOL TARTRATE
  5. AUBAGIO [Concomitant]
     Active Substance: TERIFLUNOMIDE
  6. DUPIXENT [Suspect]
     Active Substance: DUPILUMAB
     Indication: MULTIPLE SCLEROSIS
     Dosage: 300 MG, QOW
     Route: 058
     Dates: start: 20180208
  7. MEDROXYPROGESTERONE [MEDROXYPROGESTERONE ACETATE] [Concomitant]
  8. SERTRALINE [Concomitant]
     Active Substance: SERTRALINE HYDROCHLORIDE

REACTIONS (2)
  - Hypoaesthesia [Not Recovered/Not Resolved]
  - Fatigue [Not Recovered/Not Resolved]
